FAERS Safety Report 23188746 (Version 1)
Quarter: 2023Q4

REPORT INFORMATION
  Report Type: Spontaneous
  Country: US (occurrence: US)
  Receive Date: 20231115
  Receipt Date: 20231115
  Transmission Date: 20240110
  Serious: No
  Sender: FDA-Public Use
  Company Number: US-PFIZER INC-202300361670

PATIENT
  Age: 52 Year
  Sex: Female

DRUGS (3)
  1. PAXLOVID [Suspect]
     Active Substance: NIRMATRELVIR\RITONAVIR
     Indication: COVID-19 treatment
     Dosage: UNK
     Dates: start: 20231031, end: 20231104
  2. SUDAFED [Concomitant]
     Active Substance: PSEUDOEPHEDRINE HYDROCHLORIDE
     Dosage: UNK
     Dates: start: 20231030, end: 20231102
  3. GUAIFENESIN [Concomitant]
     Active Substance: GUAIFENESIN
     Dosage: UNK
     Dates: start: 20231030, end: 20231102

REACTIONS (3)
  - Dysgeusia [Recovering/Resolving]
  - COVID-19 [Unknown]
  - Disease recurrence [Unknown]

NARRATIVE: CASE EVENT DATE: 20231031
